FAERS Safety Report 7185148-3 (Version None)
Quarter: 2010Q4

REPORT INFORMATION
  Report Type: 
  Country: None (occurrence: None)
  Receive Date: 20101222
  Receipt Date: 20101213
  Transmission Date: 20110411
  Serious: Yes (Other)
  Sender: FDA-Public Use
  Company Number: FR-JNJFOC-20101207148

PATIENT
  Age: 54 Year
  Sex: Male

DRUGS (3)
  1. IXPRIM [Suspect]
     Indication: BACK PAIN
     Route: 048
  2. APRANAX [Suspect]
     Indication: BACK PAIN
     Route: 065
  3. INSULIN [Concomitant]

REACTIONS (2)
  - HYPOGLYCAEMIA [None]
  - HYPOGLYCAEMIC COMA [None]
